FAERS Safety Report 13457878 (Version 10)
Quarter: 2021Q1

REPORT INFORMATION
  Report Type: Spontaneous
  Country: US (occurrence: US)
  Receive Date: 20170419
  Receipt Date: 20210108
  Transmission Date: 20210419
  Serious: Yes (Death, Hospitalization, Other)
  Sender: FDA-Public Use
  Company Number: US-ASTRAZENECA-2017SE38923

PATIENT
  Age: 19514 Day
  Sex: Male
  Weight: 54.4 kg

DRUGS (103)
  1. PROTONIX [Suspect]
     Active Substance: PANTOPRAZOLE SODIUM
     Indication: GASTROOESOPHAGEAL REFLUX DISEASE
     Dosage: 40.0MG UNKNOWN
     Route: 048
     Dates: start: 20111101
  2. PROTONIX [Suspect]
     Active Substance: PANTOPRAZOLE SODIUM
     Indication: GASTROOESOPHAGEAL REFLUX DISEASE
     Dosage: 40.0MG UNKNOWN
     Route: 048
     Dates: start: 20190504
  3. LANTUS [Concomitant]
     Active Substance: INSULIN GLARGINE
     Dosage: 100 UNIT/ML 0.1 ML ONCE A DAY
     Dates: start: 20100114
  4. LANTUS [Concomitant]
     Active Substance: INSULIN GLARGINE
     Dosage: 30 UNIT SUBCUTANEOUSLY DAILY AT BEDTIME
     Dates: start: 20111101
  5. BENADRYL [Concomitant]
     Active Substance: DIPHENHYDRAMINE HYDROCHLORIDE
     Indication: HYPERSENSITIVITY
  6. ASPIRIN. [Concomitant]
     Active Substance: ASPIRIN
     Indication: CARDIAC DISORDER
  7. MELATONIN [Concomitant]
     Active Substance: MELATONIN
     Indication: SLEEP DISORDER
  8. FLUTICASONE. [Concomitant]
     Active Substance: FLUTICASONE
  9. TRAZODONE [Concomitant]
     Active Substance: TRAZODONE HYDROCHLORIDE
  10. REGLAN [Concomitant]
     Active Substance: METOCLOPRAMIDE HYDROCHLORIDE
  11. TIOTROPIUM BROMIDE MONOHYDRATE [Concomitant]
     Active Substance: TIOTROPIUM BROMIDE MONOHYDRATE
  12. VENTOLINE [Concomitant]
     Active Substance: ALBUTEROL
  13. NEPRO [Concomitant]
     Active Substance: DIETARY SUPPLEMENT
  14. TYLENOL WITH CODEINE [Concomitant]
     Active Substance: ACETAMINOPHEN\CODEINE PHOSPHATE
  15. NEXIUM [Suspect]
     Active Substance: ESOMEPRAZOLE MAGNESIUM
     Indication: GASTROOESOPHAGEAL REFLUX DISEASE
     Dosage: 40.0MG UNKNOWN
     Route: 048
  16. ISOSORBIDE MONONITRATE. [Concomitant]
     Active Substance: ISOSORBIDE MONONITRATE
     Dosage: 30.0MG UNKNOWN
     Dates: start: 20090911
  17. VENTOLIN HFA [Concomitant]
     Active Substance: ALBUTEROL SULFATE
     Dosage: 2 PUFFS EVERY 6 HOURS AS NEEDED
     Dates: start: 20110929
  18. SPIRIVA [Concomitant]
     Active Substance: TIOTROPIUM BROMIDE MONOHYDRATE
     Indication: CHRONIC OBSTRUCTIVE PULMONARY DISEASE
  19. VALIUM [Concomitant]
     Active Substance: DIAZEPAM
     Indication: ANXIETY
  20. HYDRALAZINE [Concomitant]
     Active Substance: HYDRALAZINE HYDROCHLORIDE
     Indication: HYPERTENSION
  21. REMERON [Concomitant]
     Active Substance: MIRTAZAPINE
  22. RENVELA [Concomitant]
     Active Substance: SEVELAMER CARBONATE
  23. REQUIP [Concomitant]
     Active Substance: ROPINIROLE HYDROCHLORIDE
  24. MIDAZOLAM. [Concomitant]
     Active Substance: MIDAZOLAM
  25. HYDRALAZINE HYDROCHLORIDE. [Concomitant]
     Active Substance: HYDRALAZINE HYDROCHLORIDE
  26. FENTANYL. [Concomitant]
     Active Substance: FENTANYL
     Indication: PAIN
     Dosage: 100 MCG/HR
     Dates: start: 20091111
  27. DIOVAN [Concomitant]
     Active Substance: VALSARTAN
     Route: 048
     Dates: start: 20120327
  28. ESCITALOPRAM [Concomitant]
     Active Substance: ESCITALOPRAM OXALATE
     Indication: ANTIDEPRESSANT THERAPY
     Dosage: 1 TABLET IN THE MORNING
     Route: 048
     Dates: start: 20120605
  29. SYMBYAX [Concomitant]
     Active Substance: FLUOXETINE HYDROCHLORIDE\OLANZAPINE
  30. AUGMENTIN [Concomitant]
     Active Substance: AMOXICILLIN\CLAVULANATE POTASSIUM
  31. ZETIA [Concomitant]
     Active Substance: EZETIMIBE
  32. AMLODIPINE [Concomitant]
     Active Substance: AMLODIPINE BESYLATE
     Indication: HYPERTENSION
  33. CLOPIDOGREL [Concomitant]
     Active Substance: CLOPIDOGREL BISULFATE
     Indication: ANTICOAGULANT THERAPY
  34. DOXAZOSIN [Concomitant]
     Active Substance: DOXAZOSIN MESYLATE
     Route: 065
     Dates: start: 20110727
  35. DEPAKOTE [Concomitant]
     Active Substance: DIVALPROEX SODIUM
  36. COLACE [Concomitant]
     Active Substance: DOCUSATE SODIUM
  37. DIPRIVAN [Concomitant]
     Active Substance: PROPOFOL
  38. HUMALOG [Concomitant]
     Active Substance: INSULIN LISPRO
  39. TYLENOL [Concomitant]
     Active Substance: ACETAMINOPHEN
  40. LAMICTAL [Concomitant]
     Active Substance: LAMOTRIGINE
  41. NEXIUM [Suspect]
     Active Substance: ESOMEPRAZOLE MAGNESIUM
     Indication: GASTROOESOPHAGEAL REFLUX DISEASE
     Route: 048
     Dates: start: 20090415
  42. PROTONIX [Suspect]
     Active Substance: PANTOPRAZOLE SODIUM
     Indication: GASTROOESOPHAGEAL REFLUX DISEASE
     Route: 065
  43. PROTONIX [Suspect]
     Active Substance: PANTOPRAZOLE SODIUM
     Indication: GASTROOESOPHAGEAL REFLUX DISEASE
     Dosage: 40.0MG UNKNOWN
     Route: 048
     Dates: start: 20181129
  44. METOPROLOL TARTRATE. [Concomitant]
     Active Substance: METOPROLOL TARTRATE
     Dosage: 25.0MG UNKNOWN
     Dates: start: 20090911
  45. LEVOFLOXACIN. [Concomitant]
     Active Substance: LEVOFLOXACIN
     Route: 048
     Dates: start: 20150120
  46. LABETALOL [Concomitant]
     Active Substance: LABETALOL\LABETALOL HYDROCHLORIDE
     Indication: HYPERTENSION
     Route: 048
     Dates: start: 20160107
  47. QUETIAPINE. [Concomitant]
     Active Substance: QUETIAPINE
  48. DULOXETINE. [Concomitant]
     Active Substance: DULOXETINE
     Indication: ANTIDEPRESSANT THERAPY
  49. FUROSEMIDE. [Concomitant]
     Active Substance: FUROSEMIDE
     Route: 065
     Dates: start: 20101026
  50. OXCARBAZEPINE. [Concomitant]
     Active Substance: OXCARBAZEPINE
     Route: 065
     Dates: start: 20110727
  51. METHYLPHENIDATE. [Concomitant]
     Active Substance: METHYLPHENIDATE
     Route: 065
     Dates: start: 20120218
  52. FLONASE [Concomitant]
     Active Substance: FLUTICASONE PROPIONATE
  53. SENOKOT [Concomitant]
     Active Substance: SENNOSIDES
  54. ZOFRAN [Concomitant]
     Active Substance: ONDANSETRON HYDROCHLORIDE
  55. AMMONIUM LACTATE. [Concomitant]
     Active Substance: AMMONIUM LACTATE
  56. CLONAZEPAM. [Concomitant]
     Active Substance: CLONAZEPAM
  57. SUCRALFATE. [Concomitant]
     Active Substance: SUCRALFATE
  58. VANCOMYCIN HYDROCHLORIDE. [Concomitant]
     Active Substance: VANCOMYCIN HYDROCHLORIDE
  59. MIDODRINE HYDROCHLORIDE. [Concomitant]
     Active Substance: MIDODRINE HYDROCHLORIDE
  60. NULYTELY [Concomitant]
     Active Substance: POLYETHYLENE GLYCOL 3350\POTASSIUM CHLORIDE\SODIUM BICARBONATE\SODIUM CHLORIDE
  61. NEXIUM [Suspect]
     Active Substance: ESOMEPRAZOLE MAGNESIUM
     Indication: GASTROOESOPHAGEAL REFLUX DISEASE
     Dosage: 40.0MG UNKNOWN
     Route: 048
  62. PROTONIX [Suspect]
     Active Substance: PANTOPRAZOLE SODIUM
     Indication: GASTROOESOPHAGEAL REFLUX DISEASE
     Dosage: 40.0MG UNKNOWN
     Route: 048
     Dates: start: 20170612
  63. NOVOLOG [Concomitant]
     Active Substance: INSULIN ASPART
     Dosage: 100 UNIT/ML
     Dates: start: 20100114
  64. FENTANYL. [Concomitant]
     Active Substance: FENTANYL
     Indication: PAIN
     Dosage: APPLY 1 PATCH EVERY 72 HOURS
     Route: 062
     Dates: start: 20100921
  65. ALPRAZOLAM. [Concomitant]
     Active Substance: ALPRAZOLAM
     Indication: ANXIETY
     Route: 048
     Dates: start: 20110419
  66. GABAPENTIN. [Concomitant]
     Active Substance: GABAPENTIN
     Indication: RESTLESS LEGS SYNDROME
  67. PREDNISONE. [Concomitant]
     Active Substance: PREDNISONE
     Indication: INFLAMMATION
  68. ZOLOFT [Concomitant]
     Active Substance: SERTRALINE HYDROCHLORIDE
     Indication: ANTIDEPRESSANT THERAPY
  69. CYCLOBENZAPRINE. [Concomitant]
     Active Substance: CYCLOBENZAPRINE
     Indication: MUSCLE RELAXANT THERAPY
  70. ADVAIR HFA [Concomitant]
     Active Substance: FLUTICASONE PROPIONATE\SALMETEROL XINAFOATE
  71. ATIVAN [Concomitant]
     Active Substance: LORAZEPAM
  72. DULCOLAX NOS [Concomitant]
     Active Substance: BISACODYL OR DOCUSATE SODIUM
  73. LYRICA [Concomitant]
     Active Substance: PREGABALIN
  74. BIOFREEZE [Concomitant]
     Active Substance: MENTHOL
  75. MIDODRINE [Concomitant]
     Active Substance: MIDODRINE
  76. NEXIUM [Suspect]
     Active Substance: ESOMEPRAZOLE MAGNESIUM
     Indication: GASTROOESOPHAGEAL REFLUX DISEASE
     Route: 048
     Dates: start: 2008
  77. LOSARTAN. [Concomitant]
     Active Substance: LOSARTAN
  78. HYDROCHLOROTHIAZIDE. [Concomitant]
     Active Substance: HYDROCHLOROTHIAZIDE
     Route: 065
     Dates: start: 20120218
  79. LEXAPRO [Concomitant]
     Active Substance: ESCITALOPRAM OXALATE
  80. SANDOSTATIN [Concomitant]
     Active Substance: OCTREOTIDE ACETATE
  81. PROCRIT [Concomitant]
     Active Substance: ERYTHROPOIETIN
  82. SODIUM PHOSPHATE [Concomitant]
     Active Substance: SODIUM PHOSPHATE
  83. AMLODIPINE BESYLATE. [Concomitant]
     Active Substance: AMLODIPINE BESYLATE
  84. CALCIUM ACETATE. [Concomitant]
     Active Substance: CALCIUM ACETATE
  85. CITALOPRAM [Concomitant]
     Active Substance: CITALOPRAM HYDROBROMIDE
  86. LABETALOL HYDROCHLORIDE. [Concomitant]
     Active Substance: LABETALOL HYDROCHLORIDE
  87. NITROGLYCERINE [Concomitant]
     Active Substance: NITROGLYCERIN
  88. PEGASYS [Concomitant]
     Active Substance: PEGINTERFERON ALFA-2A
  89. GENERLAC [Concomitant]
     Active Substance: LACTULOSE
     Indication: CONSTIPATION
  90. PROPRANOLOL [Concomitant]
     Active Substance: PROPRANOLOL HYDROCHLORIDE
     Indication: HYPERTENSION
  91. ROPINIROLE. [Concomitant]
     Active Substance: ROPINIROLE
     Indication: RESTLESS LEGS SYNDROME
  92. ENEMA (SODIUM PHOSPHATE, DIBASIC\SODIUM PHOSPHATE, MONOBASIC) [Concomitant]
     Active Substance: SODIUM PHOSPHATE, DIBASIC\SODIUM PHOSPHATE, MONOBASIC
  93. SERTRALINE [Concomitant]
     Active Substance: SERTRALINE HYDROCHLORIDE
  94. NEXIUM [Suspect]
     Active Substance: ESOMEPRAZOLE MAGNESIUM
     Indication: GASTROOESOPHAGEAL REFLUX DISEASE
     Dosage: 20.0MG UNKNOWN
     Route: 048
     Dates: start: 20120828
  95. PROTONIX [Suspect]
     Active Substance: PANTOPRAZOLE SODIUM
     Indication: GASTROOESOPHAGEAL REFLUX DISEASE
     Dosage: 40.0MG UNKNOWN
     Route: 048
  96. OMEPRAZOLE. [Concomitant]
     Active Substance: OMEPRAZOLE
     Indication: GASTROOESOPHAGEAL REFLUX DISEASE
  97. OXYCODONE [Concomitant]
     Active Substance: OXYCODONE
     Indication: PAIN
     Dosage: 1 TABLET EVERY 6 HOURS AS NEEDED
     Dates: start: 20100419
  98. FERREX [Concomitant]
     Active Substance: FERRIC POLYSACCHARIDE COMPLEX
  99. RIBAVIRIN. [Concomitant]
     Active Substance: RIBAVIRIN
  100. BREO ELLIPTA [Concomitant]
     Active Substance: FLUTICASONE FUROATE\VILANTEROL TRIFENATATE
  101. CELEXA [Concomitant]
     Active Substance: CITALOPRAM HYDROBROMIDE
  102. HALDOL [Concomitant]
     Active Substance: HALOPERIDOL
  103. CLONIDINE HYDROCHLORIDE. [Concomitant]
     Active Substance: CLONIDINE HYDROCHLORIDE

REACTIONS (9)
  - End stage renal disease [Fatal]
  - Renal failure [Not Recovered/Not Resolved]
  - Chronic kidney disease [Unknown]
  - Hyperkalaemia [Unknown]
  - Acute kidney injury [Unknown]
  - Chronic kidney disease-mineral and bone disorder [Unknown]
  - Hyperparathyroidism secondary [Unknown]
  - Renal tubular necrosis [Unknown]
  - Nephrogenic anaemia [Unknown]

NARRATIVE: CASE EVENT DATE: 20121026
